FAERS Safety Report 20489507 (Version 1)
Quarter: 2022Q1

REPORT INFORMATION
  Report Type: Spontaneous
  Country: US (occurrence: US)
  Receive Date: 20220218
  Receipt Date: 20220218
  Transmission Date: 20220423
  Serious: Yes (Hospitalization)
  Sender: FDA-Public Use
  Company Number: US-PFIZER INC-202200248030

PATIENT
  Age: 40 Year
  Sex: Female
  Weight: 49.887 kg

DRUGS (3)
  1. SILDENAFIL CITRATE [Suspect]
     Active Substance: SILDENAFIL CITRATE
     Dosage: UNK
  2. BOSENTAN [Suspect]
     Active Substance: BOSENTAN
     Dosage: UNK
  3. ORENITRAM [Suspect]
     Active Substance: TREPROSTINIL
     Indication: Pulmonary arterial hypertension
     Dosage: 125 MG, 3X/DAY (EVERY 8 HOURS)
     Route: 048
     Dates: start: 20190124

REACTIONS (2)
  - Heart transplant [Unknown]
  - Lung transplant [Unknown]
